FAERS Safety Report 22172276 (Version 1)
Quarter: 2023Q2

REPORT INFORMATION
  Report Type: Spontaneous
  Country: US (occurrence: US)
  Receive Date: 20230404
  Receipt Date: 20230404
  Transmission Date: 20230721
  Serious: Yes (Other)
  Sender: FDA-Public Use
  Company Number: US-MYLANLABS-2023M1034225

PATIENT
  Age: 72 Year
  Sex: Male
  Weight: 83.91 kg

DRUGS (4)
  1. DILANTIN [Suspect]
     Active Substance: PHENYTOIN
     Indication: Epilepsy
     Dosage: 4 DOSAGE FORM, QD, 4 TABLETS PER DAY
     Route: 065
     Dates: start: 196309
  2. DILANTIN [Suspect]
     Active Substance: PHENYTOIN
     Indication: Seizure
  3. PRIMIDONE [Concomitant]
     Active Substance: PRIMIDONE
     Indication: Epilepsy
     Dosage: 250 MILLIGRAM, QD (ONCE A DAY)
     Route: 065
  4. PHENOBARBITAL [Concomitant]
     Active Substance: PHENOBARBITAL
     Indication: Epilepsy
     Dosage: 5 DOSAGE FORM, QD (5 TABS PER DAY)
     Route: 065

REACTIONS (1)
  - Neuropathy peripheral [Unknown]
